FAERS Safety Report 7399645-9 (Version None)
Quarter: 2011Q2

REPORT INFORMATION
  Report Type: 
  Country: None (occurrence: None)
  Receive Date: 20110407
  Receipt Date: 20101029
  Transmission Date: 20111010
  Serious: No
  Sender: FDA-Public Use
  Company Number: US-KINGPHARMUSA00001-K201001336

PATIENT
  Sex: Male

DRUGS (3)
  1. PERCOCET [Concomitant]
     Indication: BACK PAIN
     Dosage: UNK, PRN
  2. SKELAXIN [Suspect]
     Indication: BACK PAIN
     Dosage: 800 MG, TID, PRN
     Route: 048
     Dates: start: 20101020, end: 20101001
  3. SKELAXIN [Suspect]
     Indication: SPINAL COLUMN STENOSIS
     Dosage: 800 MG, QHS
     Dates: start: 20101001, end: 20101028

REACTIONS (11)
  - MUSCLE SPASMS [None]
  - FEELING HOT [None]
  - DIZZINESS [None]
  - FEELING ABNORMAL [None]
  - COLD SWEAT [None]
  - HEADACHE [None]
  - ANXIETY [None]
  - ABDOMINAL DISCOMFORT [None]
  - SOMNOLENCE [None]
  - HYPERSENSITIVITY [None]
  - ERYTHEMA [None]
